FAERS Safety Report 20526101 (Version 1)
Quarter: 2022Q1

REPORT INFORMATION
  Report Type: Spontaneous
  Country: ES (occurrence: ES)
  Receive Date: 20220228
  Receipt Date: 20220228
  Transmission Date: 20220424
  Serious: Yes (Other)
  Sender: FDA-Public Use
  Company Number: None

PATIENT
  Age: 52 Year
  Sex: Female

DRUGS (2)
  1. SERTRALINE HYDROCHLORIDE [Suspect]
     Active Substance: SERTRALINE HYDROCHLORIDE
     Indication: Anxiety
     Dosage: 50 MG, 1X/DAY
     Route: 048
     Dates: start: 20220209, end: 20220210
  2. BROMAZEPAM [Concomitant]
     Active Substance: BROMAZEPAM
     Dosage: UNK

REACTIONS (2)
  - Purpura [Unknown]
  - Orbital haematoma [Unknown]

NARRATIVE: CASE EVENT DATE: 20220210
